FAERS Safety Report 8931524 (Version 6)
Quarter: 2018Q1

REPORT INFORMATION
  Report Type: Spontaneous
  Country: US (occurrence: US)
  Receive Date: 20121128
  Receipt Date: 20180316
  Transmission Date: 20180509
  Serious: Yes (Hospitalization, Other)
  Sender: FDA-Public Use
  Company Number: US-ELI_LILLY_AND_COMPANY-US201211005222

PATIENT
  Age: 82 Year
  Sex: Male

DRUGS (3)
  1. AXIRON [Suspect]
     Active Substance: TESTOSTERONE
     Indication: BLOOD TESTOSTERONE DECREASED
     Dosage: 60 MG, QD
     Route: 065
     Dates: start: 201205, end: 201206
  2. METHOTREXATE. [Suspect]
     Active Substance: METHOTREXATE
     Dosage: 15 MG, WEEKLY (1/W)
     Route: 048
     Dates: start: 20080312
  3. METHOTREXATE. [Suspect]
     Active Substance: METHOTREXATE
     Indication: RHEUMATOID ARTHRITIS
     Dosage: 10 MG, WEEKLY (1/W)
     Route: 048
     Dates: start: 200802

REACTIONS (5)
  - Pulmonary embolism [Unknown]
  - Gait disturbance [Unknown]
  - Deep vein thrombosis [Recovered/Resolved]
  - Purpura [Unknown]
  - Pain [Unknown]

NARRATIVE: CASE EVENT DATE: 20120702
